FAERS Safety Report 8549250-3 (Version None)
Quarter: 2012Q3

REPORT INFORMATION
  Report Type: 
  Country: None (occurrence: None)
  Receive Date: 20120730
  Receipt Date: 20120727
  Transmission Date: 20120928
  Serious: Yes (Hospitalization, Other)
  Sender: FDA-Public Use
  Company Number: PHHY2012BR042609

PATIENT
  Sex: Female

DRUGS (5)
  1. PAMELOR [Suspect]
     Indication: MIGRAINE
     Dosage: 25 MG, QD
  2. TRILEPTAL [Suspect]
     Dosage: 300 MG, UNK
  3. ZOLPIDEM TARTRATE [Concomitant]
  4. PHENOBARBITAL TAB [Concomitant]
  5. PAMELOR [Suspect]
     Dosage: 75 MG, UNK

REACTIONS (9)
  - PARAESTHESIA [None]
  - ARACHNOID CYST [None]
  - HEADACHE [None]
  - SUBDURAL HAEMATOMA [None]
  - NAUSEA [None]
  - EPILEPSY [None]
  - DRY MOUTH [None]
  - HEAD DISCOMFORT [None]
  - CONVULSION [None]
